FAERS Safety Report 20009870 (Version 1)
Quarter: 2021Q4

REPORT INFORMATION
  Report Type: Spontaneous
  Country: US (occurrence: US)
  Receive Date: 20211028
  Receipt Date: 20211028
  Transmission Date: 20220304
  Serious: No
  Sender: FDA-Public Use
  Company Number: None

PATIENT
  Sex: Male

DRUGS (1)
  1. INLYTA [Suspect]
     Active Substance: AXITINIB
     Route: 048
     Dates: start: 20210901

REACTIONS (6)
  - Intestinal obstruction [None]
  - Constipation [None]
  - Decreased appetite [None]
  - Dehydration [None]
  - Abdominal discomfort [None]
  - Abdominal discomfort [None]
